FAERS Safety Report 7812420-3 (Version None)
Quarter: 2011Q4

REPORT INFORMATION
  Report Type: 
  Country: None (occurrence: None)
  Receive Date: 20111011
  Receipt Date: 20111004
  Transmission Date: 20120403
  Serious: Yes (Other)
  Sender: FDA-Public Use
  Company Number: 2010SP041189

PATIENT
  Age: 46 Year
  Sex: Female

DRUGS (3)
  1. IMPLANON [Suspect]
     Dates: start: 20080617
  2. TRAMADOL HCL [Concomitant]
  3. AMITRIPTYLINE HCL [Concomitant]

REACTIONS (1)
  - BREAST CANCER FEMALE [None]
